FAERS Safety Report 6186853-8 (Version None)
Quarter: 2009Q2

REPORT INFORMATION
  Report Type: 
  Country: None (occurrence: None)
  Receive Date: 20090512
  Receipt Date: 20090504
  Transmission Date: 20091009
  Serious: Yes (Other)
  Sender: FDA-Public Use
  Company Number: US-JNJFOC-20090500984

PATIENT
  Sex: Female
  Weight: 157.85 kg

DRUGS (12)
  1. SIMPLY SLEEP NIGHTTIME [Suspect]
     Indication: INSOMNIA
     Route: 048
  2. NAPROXEN [Concomitant]
     Indication: ANTIINFLAMMATORY THERAPY
  3. NEXIUM [Concomitant]
     Indication: GASTROOESOPHAGEAL REFLUX DISEASE
  4. DARVOCET-N 100 [Concomitant]
     Indication: PAIN
  5. CYMBALTA [Concomitant]
     Indication: DEPRESSION
  6. TRAZODONE HYDROCHLORIDE [Concomitant]
     Indication: INSOMNIA
  7. LOPRESSOR [Concomitant]
     Indication: HYPERTENSION
  8. BYETTA [Concomitant]
     Indication: DIABETES MELLITUS
  9. LANTUS [Concomitant]
     Indication: DIABETES MELLITUS
  10. GLUCOPHAGE [Concomitant]
     Indication: DIABETES MELLITUS
  11. GLUCOTROL [Concomitant]
     Indication: DIABETES MELLITUS
  12. LAMISIL [Concomitant]
     Indication: ONYCHOMYCOSIS

REACTIONS (1)
  - DEPRESSION [None]
